FAERS Safety Report 6786375-7 (Version None)
Quarter: 2010Q2

REPORT INFORMATION
  Report Type: 
  Country: None (occurrence: None)
  Receive Date: 20100623
  Receipt Date: 20100610
  Transmission Date: 20101027
  Serious: Yes (Other)
  Sender: FDA-Public Use
  Company Number: PHHY2010SG38717

PATIENT
  Age: 47 Year

DRUGS (3)
  1. ZOLEDRONATE [Suspect]
     Dosage: 4 MG, QMO
     Route: 042
  2. CALCIUM CARBONATE [Concomitant]
     Dosage: 900 MG
  3. VITAMIN D [Concomitant]
     Dosage: 400 IU

REACTIONS (1)
  - HIP FRACTURE [None]
